FAERS Safety Report 6905066-2 (Version None)
Quarter: 2010Q3

REPORT INFORMATION
  Report Type: 
  Country: None (occurrence: None)
  Receive Date: 20100804
  Receipt Date: 20090902
  Transmission Date: 20110219
  Serious: Yes (Other)
  Sender: FDA-Public Use
  Company Number: US-PFIZER INC-2009248208

PATIENT
  Sex: Female
  Weight: 63.946 kg

DRUGS (4)
  1. LYRICA [Suspect]
     Indication: FIBROMYALGIA
     Dosage: FREQUENCY: 2X/DAY, EVERY DAY;
     Dates: start: 20090101
  2. ABILIFY [Suspect]
  3. CYMBALTA [Concomitant]
  4. ATIVAN [Concomitant]

REACTIONS (5)
  - INCREASED APPETITE [None]
  - THINKING ABNORMAL [None]
  - VISION BLURRED [None]
  - WEIGHT INCREASED [None]
  - WHITE BLOOD CELL COUNT DECREASED [None]
